FAERS Safety Report 11581586 (Version 1)
Quarter: 2015Q4

REPORT INFORMATION
  Report Type: Spontaneous
  Country: US (occurrence: US)
  Receive Date: 20151001
  Receipt Date: 20151001
  Transmission Date: 20160304
  Serious: No
  Sender: FDA-Public Use
  Company Number: US-ROCHE-692268

PATIENT
  Age: 38 Year
  Sex: Female

DRUGS (2)
  1. PEGASYS [Suspect]
     Active Substance: PEGINTERFERON ALFA-2A
     Indication: HEPATITIS C
     Dosage: FORM: PRE-FILLED SYRINGE, PATIENT IN WEEK 08
     Route: 058
  2. RIBAVIRIN. [Suspect]
     Active Substance: RIBAVIRIN
     Indication: HEPATITIS C
     Dosage: ADMINISTERED IN DIVIDED DOSES; PATIENT IN WEEK 08
     Route: 048

REACTIONS (11)
  - Mood swings [Unknown]
  - Anxiety [Unknown]
  - Hyperhidrosis [Unknown]
  - Pallor [Unknown]
  - Nausea [Unknown]
  - Insomnia [Not Recovered/Not Resolved]
  - Energy increased [Unknown]
  - Decreased appetite [Unknown]
  - Fatigue [Unknown]
  - Disturbance in attention [Unknown]
  - Weight decreased [Unknown]

NARRATIVE: CASE EVENT DATE: 20100312
